FAERS Safety Report 19813548 (Version 1)
Quarter: 2021Q3

REPORT INFORMATION
  Report Type: Spontaneous
  Country: US (occurrence: US)
  Receive Date: 20210909
  Receipt Date: 20210909
  Transmission Date: 20211014
  Serious: Yes (Hospitalization)
  Sender: FDA-Public Use
  Company Number: None

PATIENT
  Age: 67 Year
  Sex: Male

DRUGS (2)
  1. CYCLOSPORINE MODIFIED [Suspect]
     Active Substance: CYCLOSPORINE
     Indication: HEART TRANSPLANT
     Route: 048
     Dates: start: 20200330
  2. HYDROXYUREA. [Suspect]
     Active Substance: HYDROXYUREA
     Indication: HEART TRANSPLANT
     Dosage: ?          OTHER FREQUENCY:QHS;?
     Route: 048
     Dates: start: 20171019

REACTIONS (1)
  - Hospitalisation [None]

NARRATIVE: CASE EVENT DATE: 20210808
